FAERS Safety Report 21934831 (Version 2)
Quarter: 2023Q1

REPORT INFORMATION
  Report Type: Report from Study
  Country: GB (occurrence: GB)
  Receive Date: 20230201
  Receipt Date: 20230203
  Transmission Date: 20230417
  Serious: Yes (Hospitalization, Other)
  Sender: FDA-Public Use
  Company Number: GB-ABBVIE-4288376

PATIENT
  Sex: Male

DRUGS (1)
  1. SKYRIZI [Suspect]
     Active Substance: RISANKIZUMAB-RZAA
     Indication: Psoriasis
     Route: 058

REACTIONS (8)
  - Medical procedure [Unknown]
  - Loss of consciousness [Unknown]
  - Asthma [Unknown]
  - Malaise [Unknown]
  - Hypertension [Unknown]
  - Dizziness [Unknown]
  - Lower respiratory tract infection [Unknown]
  - Nausea [Unknown]
